FAERS Safety Report 21723280 (Version 1)
Quarter: 2022Q4

REPORT INFORMATION
  Report Type: Spontaneous
  Country: US (occurrence: None)
  Receive Date: 20221212
  Receipt Date: 20221212
  Transmission Date: 20230113
  Serious: Yes (Disabling, Other)
  Sender: FDA-Public Use
  Company Number: None

PATIENT
  Age: 48 Year
  Sex: Female
  Weight: 78.75 kg

DRUGS (13)
  1. RECLAST [Suspect]
     Active Substance: ZOLEDRONIC ACID
     Indication: Osteoporosis
     Dosage: OTHER QUANTITY : 1 IV;?
     Route: 042
     Dates: start: 20220810, end: 20220810
  2. AMBIEN [Concomitant]
     Active Substance: ZOLPIDEM TARTRATE
  3. CLONAZEPAM [Concomitant]
     Active Substance: CLONAZEPAM
  4. ZOFRAN [Concomitant]
     Active Substance: ONDANSETRON HYDROCHLORIDE
  5. VITAMIN D [Concomitant]
     Active Substance: VITAMIN D NOS
  6. VITAMIN B [Concomitant]
     Active Substance: VITAMIN B
  7. High energy multi vitamin [Concomitant]
  8. VITAMIN C [Concomitant]
     Active Substance: ASCORBIC ACID
  9. CRANBERRY [Concomitant]
     Active Substance: CRANBERRY
  10. ZINC [Concomitant]
     Active Substance: ZINC
  11. CALCIUM [Concomitant]
     Active Substance: CALCIUM
  12. MAGNESIUM [Concomitant]
     Active Substance: MAGNESIUM
  13. POTASSIUM [Concomitant]
     Active Substance: POTASSIUM

REACTIONS (13)
  - Myalgia [None]
  - Bone pain [None]
  - Vomiting [None]
  - Vertigo [None]
  - Eye pain [None]
  - Fatigue [None]
  - Platelet count decreased [None]
  - Blood calcium decreased [None]
  - Inflammatory marker increased [None]
  - Coagulopathy [None]
  - Headache [None]
  - Arthralgia [None]
  - Oversensing [None]

NARRATIVE: CASE EVENT DATE: 20220810
